FAERS Safety Report 18561798 (Version 1)
Quarter: 2020Q4

REPORT INFORMATION
  Report Type: Other
  Country: US (occurrence: US)
  Receive Date: 20201130
  Receipt Date: 20201130
  Transmission Date: 20210114
  Serious: Yes (Other)
  Sender: FDA-Public Use
  Company Number: US-ROCHE-2600704

PATIENT
  Age: 68 Year
  Sex: Female

DRUGS (7)
  1. CARBOPLATIN. [Suspect]
     Active Substance: CARBOPLATIN
     Indication: ENDOMETRIAL CANCER STAGE III
  2. HERCEPTIN [Suspect]
     Active Substance: TRASTUZUMAB
     Indication: CHRONIC KIDNEY DISEASE
     Route: 065
  3. HERCEPTIN [Suspect]
     Active Substance: TRASTUZUMAB
     Indication: ENDOMETRIAL CANCER STAGE III
  4. CARBOPLATIN. [Suspect]
     Active Substance: CARBOPLATIN
     Indication: CHRONIC KIDNEY DISEASE
     Route: 065
  5. TAXOL [Suspect]
     Active Substance: PACLITAXEL
     Indication: CHRONIC KIDNEY DISEASE
     Route: 065
  6. TAXOL [Suspect]
     Active Substance: PACLITAXEL
     Indication: ENDOMETRIAL CANCER STAGE III
  7. RASBURICASE [Concomitant]
     Active Substance: RASBURICASE

REACTIONS (4)
  - Diarrhoea [Unknown]
  - Vomiting [Unknown]
  - Tumour lysis syndrome [Unknown]
  - Nausea [Unknown]
